FAERS Safety Report 7680198-2 (Version None)
Quarter: 2011Q3

REPORT INFORMATION
  Report Type: 
  Country: None (occurrence: None)
  Receive Date: 20110812
  Receipt Date: 20110804
  Transmission Date: 20111222
  Serious: Yes (Hospitalization)
  Sender: FDA-Public Use
  Company Number: US-ROCHE-795487

PATIENT
  Sex: Female

DRUGS (2)
  1. HERCEPTIN [Suspect]
     Indication: BREAST CANCER
     Dosage: CONTINUE TO RECEIVE HER CYCLE UNTILL DECEMBER 2011.
     Route: 042
     Dates: start: 20110101
  2. TAXOTERE [Suspect]
     Indication: BREAST CANCER
     Route: 041
     Dates: start: 20110101, end: 20110401

REACTIONS (5)
  - LACRIMATION INCREASED [None]
  - DYSPNOEA [None]
  - FLUID RETENTION [None]
  - ONYCHOMADESIS [None]
  - OXYGEN SATURATION DECREASED [None]
